FAERS Safety Report 11331374 (Version 2)
Quarter: 2015Q3

REPORT INFORMATION
  Report Type: Spontaneous
  Country: US (occurrence: US)
  Receive Date: 20150803
  Receipt Date: 20150811
  Transmission Date: 20151125
  Serious: Yes (Death)
  Sender: FDA-Public Use
  Company Number: US-PFIZER INC-2015246296

PATIENT
  Age: 6 Year
  Sex: Male

DRUGS (3)
  1. TRIDIONE [Suspect]
     Active Substance: TRIMETHADIONE
     Indication: EPILEPSY
     Dosage: UNK
  2. PHENOBARBITAL. [Concomitant]
     Active Substance: PHENOBARBITAL
     Indication: EPILEPSY
     Dosage: UNK
  3. DILANTIN [Suspect]
     Active Substance: PHENYTOIN
     Indication: EPILEPSY
     Dosage: UNK

REACTIONS (4)
  - Granulocytopenia [Fatal]
  - Aplastic anaemia [Fatal]
  - Lymphadenopathy [Fatal]
  - Drug ineffective [Unknown]
